FAERS Safety Report 9375886 (Version 1)
Quarter: 2013Q2

REPORT INFORMATION
  Report Type: Spontaneous
  Country: US (occurrence: US)
  Receive Date: 20130628
  Receipt Date: 20130628
  Transmission Date: 20140414
  Serious: Yes (Hospitalization, Other)
  Sender: FDA-Public Use
  Company Number: US-US-EMD SERONO, INC.-233517J09USA

PATIENT
  Sex: Female
  Weight: 74 kg

DRUGS (7)
  1. REBIF [Suspect]
     Indication: MULTIPLE SCLEROSIS
     Route: 058
     Dates: start: 20090626
  2. CRESTOR [Concomitant]
     Indication: BLOOD CHOLESTEROL INCREASED
     Dates: start: 201005
  3. LYRICA [Concomitant]
     Indication: FIBROMYALGIA
  4. WELLBUTRIN [Concomitant]
     Indication: MUSCLE SPASMS
     Dates: start: 200908
  5. WELLBUTRIN [Concomitant]
     Indication: SMOKING CESSATION THERAPY
  6. CYMBALTA [Concomitant]
     Indication: MUSCLE SPASMS
     Dates: end: 200908
  7. CYMBALTA [Concomitant]
     Indication: FIBROMYALGIA

REACTIONS (10)
  - Coronary artery occlusion [Not Recovered/Not Resolved]
  - Aortic arteriosclerosis [Not Recovered/Not Resolved]
  - Peripheral arterial occlusive disease [Recovering/Resolving]
  - Carotid artery occlusion [Recovered/Resolved]
  - Tremor [Not Recovered/Not Resolved]
  - Swelling [Not Recovered/Not Resolved]
  - Nocturia [Recovering/Resolving]
  - Multiple sclerosis relapse [Unknown]
  - Paraesthesia [Unknown]
  - Influenza like illness [Unknown]
